FAERS Safety Report 4318517-7 (Version None)
Quarter: 2004Q1

REPORT INFORMATION
  Report Type: 
  Country: None (occurrence: None)
  Receive Date: 20040318
  Receipt Date: 20040310
  Transmission Date: 20041129
  Serious: Yes (Hospitalization)
  Sender: FDA-Public Use
  Company Number: 200410878JP

PATIENT
  Age: 77 Year
  Sex: Male

DRUGS (1)
  1. ARAVA [Suspect]
     Route: 048
     Dates: start: 20040117

REACTIONS (3)
  - ALANINE AMINOTRANSFERASE INCREASED [None]
  - ASPARTATE AMINOTRANSFERASE INCREASED [None]
  - JAUNDICE [None]
